FAERS Safety Report 5310928-6 (Version None)
Quarter: 2007Q2

REPORT INFORMATION
  Report Type: 
  Country: None (occurrence: None)
  Receive Date: 20070426
  Receipt Date: 20070426
  Transmission Date: 20071010
  Serious: No
  Sender: FDA-Public Use
  Company Number: None

PATIENT
  Age: 40 Year
  Sex: Female

DRUGS (2)
  1. ZOLOFT [Suspect]
     Indication: ANXIETY
     Dosage: 100MG QD PO
     Route: 048
     Dates: start: 20040721, end: 20070425
  2. ZOLOFT [Suspect]
     Indication: DEPRESSION
     Dosage: 100MG QD PO
     Route: 048
     Dates: start: 20040721, end: 20070425

REACTIONS (2)
  - DRUG EFFECT DECREASED [None]
  - THERAPEUTIC RESPONSE UNEXPECTED WITH DRUG SUBSTITUTION [None]
